FAERS Safety Report 8245029-0 (Version None)
Quarter: 2012Q1

REPORT INFORMATION
  Report Type: 
  Country: None (occurrence: None)
  Receive Date: 20120329
  Receipt Date: 20120328
  Transmission Date: 20120608
  Serious: Yes (Other)
  Sender: FDA-Public Use
  Company Number: US-PFIZER INC-2012079877

PATIENT
  Sex: Female

DRUGS (9)
  1. GEODON [Suspect]
     Indication: BIPOLAR I DISORDER
     Dosage: 120 MG, 1X/DAY
     Route: 048
     Dates: start: 20110401, end: 20120301
  2. CLONAZEPAM [Concomitant]
     Dosage: 2 MG, UNK
  3. PAXIL [Concomitant]
     Dosage: 20 MG, UNK
  4. OXYCONTIN [Concomitant]
     Dosage: 20 MG, UNK
  5. OXYBUTYNIN [Concomitant]
     Dosage: 5 MG, UNK
  6. AMITRIPTYLINE [Concomitant]
     Dosage: 50 MG, UNK
  7. PRILOSEC [Concomitant]
     Dosage: 20 MG, UNK
  8. TERBINAFINE [Concomitant]
     Dosage: 250 MG, UNK
  9. GEODON [Suspect]

REACTIONS (1)
  - DYSPHAGIA [None]
